FAERS Safety Report 6895349-7 (Version None)
Quarter: 2010Q3

REPORT INFORMATION
  Report Type: 
  Country: None (occurrence: None)
  Receive Date: 20100802
  Receipt Date: 20100721
  Transmission Date: 20110219
  Serious: Yes (Hospitalization)
  Sender: FDA-Public Use
  Company Number: JP-AMGEN-QUU422743

PATIENT
  Sex: Female
  Weight: 49 kg

DRUGS (9)
  1. ENBREL [Suspect]
     Indication: RHEUMATOID ARTHRITIS
     Route: 058
     Dates: start: 20080805, end: 20090606
  2. ENBREL [Suspect]
     Dosage: PREVIOUSLY ON LYOPHILIZED 25 MG TWICE WEEKLY
     Route: 058
     Dates: start: 20071129, end: 20080801
  3. RHEUMATREX [Concomitant]
     Indication: RHEUMATOID ARTHRITIS
     Route: 048
  4. KETOPROFEN [Concomitant]
     Dosage: UNSPECIFIED TAP
  5. LOXOPROFEN [Concomitant]
     Indication: RHEUMATOID ARTHRITIS
     Dosage: 60 MG UNSPECIFIED FREQUENCY
     Route: 048
  6. MUCOSTA [Concomitant]
     Indication: PROPHYLAXIS
     Route: 048
  7. VOLTAREN [Concomitant]
     Indication: RHEUMATOID ARTHRITIS
     Dosage: UNSPECIFIED SUP
     Route: 054
  8. PROGRAF [Concomitant]
     Indication: RHEUMATOID ARTHRITIS
     Route: 048
     Dates: start: 20070312
  9. FOLIAMIN [Concomitant]
     Indication: PROPHYLAXIS
     Route: 048

REACTIONS (1)
  - BREAST CANCER [None]
